FAERS Safety Report 9682976 (Version 1)
Quarter: 2013Q4

REPORT INFORMATION
  Report Type: Report from Study
  Country: LB (occurrence: LB)
  Receive Date: 20131112
  Receipt Date: 20131112
  Transmission Date: 20140711
  Serious: Yes (Death)
  Sender: FDA-Public Use
  Company Number: LB-SA-2013SA114995

PATIENT
  Age: 69 Year
  Sex: Female

DRUGS (7)
  1. LANTUS SOLOSTAR [Suspect]
     Indication: DIABETES MELLITUS
     Dosage: DOSE:20 UNIT(S)
     Route: 058
     Dates: start: 201301
  2. GLIMEPIRIDE [Suspect]
     Indication: DIABETES MELLITUS
     Route: 048
  3. METFORMIN [Suspect]
     Indication: DIABETES MELLITUS
     Route: 048
  4. DIAPRIDE [Suspect]
     Indication: DIABETES MELLITUS
     Route: 048
  5. ATENOLOL [Suspect]
     Indication: PRODUCT USED FOR UNKNOWN INDICATION
     Route: 048
  6. AMLODIPINE [Suspect]
     Indication: PRODUCT USED FOR UNKNOWN INDICATION
     Route: 048
  7. SOLOSTAR [Concomitant]
     Indication: DEVICE THERAPY

REACTIONS (3)
  - Pulmonary oedema [Fatal]
  - Infection [Fatal]
  - General physical health deterioration [Fatal]
